FAERS Safety Report 6009245-0 (Version None)
Quarter: 2008Q4

REPORT INFORMATION
  Report Type: 
  Country: None (occurrence: None)
  Receive Date: 20081217
  Receipt Date: 20071210
  Transmission Date: 20090506
  Serious: No
  Sender: FDA-Public Use
  Company Number: US-AMGEN-KDL256323

PATIENT
  Sex: Female

DRUGS (3)
  1. ENBREL [Suspect]
     Indication: RHEUMATOID ARTHRITIS
     Route: 058
     Dates: start: 20071101
  2. ENBREL [Suspect]
     Indication: OSTEOARTHRITIS
  3. HYDROXYCHLOROQUINE SULFATE [Concomitant]
     Dates: start: 20050101

REACTIONS (4)
  - BURNING SENSATION [None]
  - FATIGUE [None]
  - INJECTION SITE ERYTHEMA [None]
  - INJECTION SITE SWELLING [None]
